FAERS Safety Report 5120294-7 (Version None)
Quarter: 2006Q4

REPORT INFORMATION
  Report Type: 
  Country: None (occurrence: None)
  Receive Date: 20061004
  Receipt Date: 20060718
  Transmission Date: 20070319
  Serious: Yes (Hospitalization)
  Sender: FDA-Public Use
  Company Number: US-BAYER-200614649BWH

PATIENT
  Age: 78 Year
  Sex: Male

DRUGS (4)
  1. NEXAVAR [Suspect]
     Indication: METASTATIC RENAL CELL CARCINOMA
     Dosage: TOTAL DAILY DOSE: 800 MG  UNIT DOSE: 200 MG
     Route: 048
     Dates: start: 20051001
  2. ZOMETA [Concomitant]
     Dates: start: 20051101, end: 20060710
  3. DARVOCET [Concomitant]
  4. OXYCONTIN [Concomitant]

REACTIONS (2)
  - DIARRHOEA [None]
  - FEMUR FRACTURE [None]
